FAERS Safety Report 8478335-5 (Version None)
Quarter: 2012Q2

REPORT INFORMATION
  Report Type: 
  Country: None (occurrence: None)
  Receive Date: 20120629
  Receipt Date: 20120618
  Transmission Date: 20120825
  Serious: Yes (Hospitalization, Disabling, Other)
  Sender: FDA-Public Use
  Company Number: US-PFIZER INC-2012154668

PATIENT
  Age: 28 Year
  Sex: Female

DRUGS (11)
  1. CISPLATIN [Suspect]
     Indication: OVARIAN CANCER
     Dosage: 90 MG/M2 OVER 4H ON DAY1
     Route: 041
  2. CISPLATIN [Suspect]
     Dosage: 45 MG/M 2
  3. ETOPOSIDE [Suspect]
     Indication: OVARIAN CANCER
     Dosage: 200 MG/M2 OVER 2H ON DAY3
     Route: 041
  4. CYCLOPHOSPHAMIDE [Suspect]
     Indication: OVARIAN CANCER
     Dosage: 1000 MG/M2 OVER 60MIN ON DAY 2
     Route: 041
  5. PEGFILGRASTIM [Concomitant]
     Dosage: UNK
  6. BLEOMYCIN [Suspect]
     Dosage: 15 UNITS/M2 OVER 24H ON DAY2
     Route: 041
  7. DOXORUBICIN HCL [Suspect]
     Indication: OVARIAN CANCER
     Dosage: 45 MG/M2 OVER 30MIN ON DAY3
     Route: 041
  8. ETOPOSIDE [Suspect]
     Dosage: 100 MG/M 2
  9. CYCLOPHOSPHAMIDE [Suspect]
     Dosage: 750 MG/M 2
  10. DOXORUBICIN HCL [Suspect]
     Dosage: 30 MG/M 2
  11. VINBLASTINE [Suspect]
     Indication: OVARIAN CANCER
     Dosage: 6MG/M2 OVER 30MIN ON DAY1
     Route: 041

REACTIONS (12)
  - PANCYTOPENIA [None]
  - FEBRILE NEUTROPENIA [None]
  - COORDINATION ABNORMAL [None]
  - GAIT DISTURBANCE [None]
  - NAUSEA [None]
  - RENAL FAILURE ACUTE [None]
  - STREPTOCOCCAL BACTERAEMIA [None]
  - VOMITING [None]
  - PARAESTHESIA [None]
  - PERIPHERAL SENSORIMOTOR NEUROPATHY [None]
  - CARBON MONOXIDE DIFFUSING CAPACITY DECREASED [None]
  - HYPOAESTHESIA [None]
